FAERS Safety Report 5498071-7 (Version None)
Quarter: 2007Q4

REPORT INFORMATION
  Report Type: 
  Country: None (occurrence: None)
  Receive Date: 20071025
  Receipt Date: 20071015
  Transmission Date: 20080405
  Serious: Yes (Other)
  Sender: FDA-Public Use
  Company Number: US-PFIZER INC-2007087067

PATIENT
  Sex: Female
  Weight: 65 kg

DRUGS (7)
  1. CHANTIX [Suspect]
     Indication: SMOKING CESSATION THERAPY
  2. ESTRACE [Concomitant]
  3. ESTRADIOL [Concomitant]
  4. EFFEXOR [Concomitant]
  5. NAPROSYN [Concomitant]
  6. PERCOCET [Concomitant]
     Indication: BACK DISORDER
  7. VICODIN [Concomitant]
     Indication: BACK DISORDER

REACTIONS (5)
  - CHEST DISCOMFORT [None]
  - OEDEMA PERIPHERAL [None]
  - PHARYNGEAL OEDEMA [None]
  - PRURITUS [None]
  - SKIN LESION [None]
